FAERS Safety Report 12447581 (Version 1)
Quarter: 2016Q2

REPORT INFORMATION
  Report Type: Spontaneous
  Country: US (occurrence: US)
  Receive Date: 20160608
  Receipt Date: 20160608
  Transmission Date: 20160815
  Serious: No
  Sender: FDA-Public Use
  Company Number: US-PFIZER INC-2016261157

PATIENT
  Age: 75 Year
  Sex: Female
  Weight: 62.14 kg

DRUGS (2)
  1. LYRICA [Suspect]
     Active Substance: PREGABALIN
     Indication: NEURALGIA
     Dosage: 25MG CAPSULE TWICE A DAY BY MOUTH
     Route: 048
     Dates: start: 20160513
  2. LYRICA [Suspect]
     Active Substance: PREGABALIN
     Indication: SCIATICA

REACTIONS (1)
  - Drug ineffective [Unknown]
